FAERS Safety Report 6682418-X (Version None)
Quarter: 2010Q2

REPORT INFORMATION
  Report Type: 
  Country: None (occurrence: None)
  Receive Date: 20100415
  Receipt Date: 20100405
  Transmission Date: 20101027
  Serious: Yes (Other)
  Sender: FDA-Public Use
  Company Number: US-PFIZER INC-2010043380

PATIENT
  Sex: Female

DRUGS (1)
  1. LIPITOR [Suspect]
     Dosage: UNK
     Dates: end: 20100220

REACTIONS (5)
  - CYST [None]
  - DYSPHAGIA [None]
  - LIPOMA [None]
  - MUSCULAR WEAKNESS [None]
  - SPEECH DISORDER [None]
